FAERS Safety Report 15757892 (Version 2)
Quarter: 2019Q1

REPORT INFORMATION
  Report Type: Spontaneous
  Country: US (occurrence: US)
  Receive Date: 20181225
  Receipt Date: 20190103
  Transmission Date: 20190417
  Serious: Yes (Other)
  Sender: FDA-Public Use
  Company Number: US-ROCHE-2230790

PATIENT
  Sex: Female

DRUGS (1)
  1. OCREVUS [Suspect]
     Active Substance: OCRELIZUMAB
     Indication: PRIMARY PROGRESSIVE MULTIPLE SCLEROSIS
     Route: 065

REACTIONS (12)
  - Influenza [Unknown]
  - Bronchitis [Unknown]
  - Paraesthesia [Unknown]
  - Gastric infection [Unknown]
  - Cognitive disorder [Unknown]
  - Pneumonia [Unknown]
  - Herpes zoster [Unknown]
  - Urticaria [Unknown]
  - Memory impairment [Unknown]
  - Peripheral swelling [Unknown]
  - Headache [Unknown]
  - Pyrexia [Unknown]
